FAERS Safety Report 9692498 (Version 1)
Quarter: 2013Q4

REPORT INFORMATION
  Report Type: Spontaneous
  Country: US (occurrence: US)
  Receive Date: 20131118
  Receipt Date: 20131118
  Transmission Date: 20140711
  Serious: No
  Sender: FDA-Public Use
  Company Number: US-BAYER-2013-138595

PATIENT
  Age: 41 Year
  Sex: Female
  Weight: 59.86 kg

DRUGS (17)
  1. BETASERON [Suspect]
     Dosage: 0.25 MG, QOD
     Route: 058
  2. OMEPRAZOLE [Concomitant]
     Dosage: 20 MG, UNK
     Route: 048
  3. TARKA [Concomitant]
  4. AVALIDE [Concomitant]
     Route: 048
  5. SINGULAIR [Concomitant]
     Dosage: 4 MG, UNK
     Route: 048
  6. XYZAL [Concomitant]
     Dosage: 5 MG, UNK
     Route: 048
  7. PROVIGIL [Concomitant]
     Dosage: 100 MG, UNK
     Route: 048
  8. TRAMADOL HCL CF [Concomitant]
     Dosage: 50 MG, UNK
     Route: 048
  9. MELOXICAM [Concomitant]
     Dosage: 7.5 MG, UNK
     Route: 048
  10. MULTIVITAMIN [Concomitant]
     Route: 048
  11. CALCIUM [Concomitant]
     Dosage: 500 UNK, UNK
     Route: 048
  12. POTASSIUM [Concomitant]
     Dosage: 75 MG, UNK
     Route: 048
  13. MAGNESIUM [Concomitant]
     Dosage: 30 MG, UNK
     Route: 048
  14. BIOTIN [Concomitant]
     Dosage: 5 MG, UNK
     Route: 048
  15. COQ10 [Concomitant]
     Dosage: 30 MG, UNK
     Route: 048
  16. MSM [Concomitant]
     Dosage: 500 MG, UNK
     Route: 048
  17. CHONDROITIN [Concomitant]
     Dosage: 250 MG, UNK
     Route: 048

REACTIONS (1)
  - Injection site reaction [Unknown]
